FAERS Safety Report 8407756-1 (Version None)
Quarter: 2012Q2

REPORT INFORMATION
  Report Type: 
  Country: None (occurrence: None)
  Receive Date: 20120604
  Receipt Date: 20120525
  Transmission Date: 20120825
  Serious: Yes (Hospitalization, Congenital Anomaly)
  Sender: FDA-Public Use
  Company Number: US-GLAXOSMITHKLINE-A0979808A

PATIENT
  Sex: Female
  Weight: 2.4 kg

DRUGS (1)
  1. PAXIL [Suspect]
     Indication: NERVOUSNESS
     Route: 064
     Dates: end: 19971001

REACTIONS (2)
  - PATENT DUCTUS ARTERIOSUS [None]
  - FOETAL EXPOSURE DURING PREGNANCY [None]
